FAERS Safety Report 11358561 (Version 1)
Quarter: 2015Q3

REPORT INFORMATION
  Report Type: Spontaneous
  Country: US (occurrence: US)
  Receive Date: 20150803
  Receipt Date: 20150803
  Transmission Date: 20151125
  Serious: Yes (Other)
  Sender: FDA-Public Use
  Company Number: US-ELI_LILLY_AND_COMPANY-US200902000460

PATIENT
  Age: 86 Year
  Sex: Female

DRUGS (3)
  1. ZYPREXA [Suspect]
     Active Substance: OLANZAPINE
     Dosage: 5 MG, EACH EVENING
     Route: 048
     Dates: start: 20060310, end: 200604
  2. ZYPREXA [Suspect]
     Active Substance: OLANZAPINE
     Dosage: 2.5 MG, EACH EVENING
     Route: 048
     Dates: start: 20060428, end: 200806
  3. ZYPREXA [Suspect]
     Active Substance: OLANZAPINE
     Indication: DEPRESSION
     Dates: start: 2004, end: 200806

REACTIONS (5)
  - Cerebrovascular accident [Recovering/Resolving]
  - Hallucination [Recovered/Resolved]
  - Weight increased [Recovering/Resolving]
  - Diabetes mellitus [Not Recovered/Not Resolved]
  - Mobility decreased [Not Recovered/Not Resolved]

NARRATIVE: CASE EVENT DATE: 200806
